FAERS Safety Report 19930488 (Version 1)
Quarter: 2021Q4

REPORT INFORMATION
  Report Type: Spontaneous
  Country: TR (occurrence: TR)
  Receive Date: 20211008
  Receipt Date: 20211008
  Transmission Date: 20220303
  Serious: Yes (Other)
  Sender: FDA-Public Use
  Company Number: ALC2021TR005491

PATIENT
  Age: 6 Month
  Sex: Male

DRUGS (2)
  1. TROPICAMIDE [Suspect]
     Active Substance: TROPICAMIDE
     Indication: Retinoscopy
     Dosage: 1 DRP BOTH EYES
     Route: 047
  2. TROPICAMIDE [Suspect]
     Active Substance: TROPICAMIDE
     Indication: Fundoscopy

REACTIONS (4)
  - Anaphylactic reaction [Recovered/Resolved]
  - Respiratory failure [Recovered/Resolved]
  - Circulatory collapse [Recovered/Resolved]
  - Off label use [Unknown]
